FAERS Safety Report 19115159 (Version 4)
Quarter: 2021Q3

REPORT INFORMATION
  Report Type: Spontaneous
  Country: FR (occurrence: FR)
  Receive Date: 20210409
  Receipt Date: 20210714
  Transmission Date: 20211014
  Serious: Yes (Hospitalization, Other)
  Sender: FDA-Public Use
  Company Number: NVSC2021FR071640

PATIENT
  Age: 46 Year
  Sex: Male

DRUGS (13)
  1. VANCOMYCIN [Suspect]
     Active Substance: VANCOMYCIN
     Indication: BACTERAEMIA
     Dosage: UNK
     Route: 065
     Dates: start: 20201001
  2. CONTRAMAL [Suspect]
     Active Substance: TRAMADOL HYDROCHLORIDE
     Indication: PRODUCT USED FOR UNKNOWN INDICATION
     Dosage: 150 MG, QD (1 DF, TID, IF NEED)
     Route: 065
     Dates: start: 20201001
  3. PARACETAMOL [Suspect]
     Active Substance: ACETAMINOPHEN
     Indication: PRODUCT USED FOR UNKNOWN INDICATION
     Dosage: 500 MG, PRN
     Route: 065
     Dates: start: 20201001
  4. BACTRIM [Suspect]
     Active Substance: SULFAMETHOXAZOLE\TRIMETHOPRIM
     Indication: PRODUCT USED FOR UNKNOWN INDICATION
     Dosage: UNK,QD
     Route: 065
     Dates: start: 20201001
  5. SERESTA [Suspect]
     Active Substance: OXAZEPAM
     Indication: PRODUCT USED FOR UNKNOWN INDICATION
     Dosage: 10 MG, QD
     Route: 065
     Dates: start: 20201001
  6. CEFTRIAXONE. [Suspect]
     Active Substance: CEFTRIAXONE
     Indication: PRODUCT USED FOR UNKNOWN INDICATION
     Dosage: 1 G
     Route: 065
     Dates: start: 20201001, end: 20201009
  7. CONTRAMAL [Suspect]
     Active Substance: TRAMADOL HYDROCHLORIDE
     Dosage: 3 DF,QD
     Route: 065
     Dates: start: 20201001
  8. DALACINE [Suspect]
     Active Substance: CLINDAMYCIN
     Indication: PRODUCT USED FOR UNKNOWN INDICATION
     Dosage: 6 DF,QD
     Route: 065
     Dates: start: 20201207, end: 20201217
  9. SERESTA [Suspect]
     Active Substance: OXAZEPAM
     Dosage: 1 DF,QD
     Route: 065
  10. VITAMIN K [Suspect]
     Active Substance: PHYTONADIONE
     Indication: PRODUCT USED FOR UNKNOWN INDICATION
     Dosage: 10 MG, QW (10 MG, WE, 10 MG FOR 1 ML 1X/WEEK ON THURSDAY)
     Route: 065
     Dates: start: 20201001
  11. DEROXAT [Suspect]
     Active Substance: PAROXETINE HYDROCHLORIDE
     Indication: PRODUCT USED FOR UNKNOWN INDICATION
     Dosage: 1 DF,QD
     Route: 065
     Dates: start: 20201001, end: 20201127
  12. ZAMUDOL [Suspect]
     Active Substance: TRAMADOL HYDROCHLORIDE
     Indication: PRODUCT USED FOR UNKNOWN INDICATION
     Dosage: 200 MG, QD
     Route: 065
     Dates: start: 20201001
  13. PRIVIGEN [Suspect]
     Active Substance: HUMAN IMMUNOGLOBULIN G
     Indication: PRODUCT USED FOR UNKNOWN INDICATION
     Dosage: 20 G, Q3W (EVERY 3 WEEKS)
     Route: 065

REACTIONS (7)
  - Staphylococcal infection [Unknown]
  - Hyper IgE syndrome [Unknown]
  - Infection [Unknown]
  - Pneumonia staphylococcal [Unknown]
  - Bacteraemia [Unknown]
  - Weight decreased [Unknown]
  - Gynaecomastia [Unknown]

NARRATIVE: CASE EVENT DATE: 2020
